FAERS Safety Report 24814220 (Version 1)
Quarter: 2025Q1

REPORT INFORMATION
  Report Type: Spontaneous
  Country: US (occurrence: None)
  Receive Date: 20250106
  Receipt Date: 20250106
  Transmission Date: 20250408
  Serious: No
  Sender: FDA-CTU
  Company Number: None

PATIENT
  Age: 71 Year
  Sex: Male

DRUGS (1)
  1. ABACAVIR SULFATE\DOLUTEGRAVIR SODIUM\LAMIVUDINE [Suspect]
     Active Substance: ABACAVIR SULFATE\DOLUTEGRAVIR SODIUM\LAMIVUDINE
     Dosage: 1.00 UNK - UNKNOWN DAILY ORAL ?
     Route: 048
     Dates: start: 20230921, end: 20240925

REACTIONS (2)
  - Angioedema [None]
  - Asthenia [None]

NARRATIVE: CASE EVENT DATE: 20240925
